FAERS Safety Report 4400539-9 (Version None)
Quarter: 2004Q3

REPORT INFORMATION
  Report Type: 
  Country: None (occurrence: None)
  Receive Date: 20040719
  Receipt Date: 20040712
  Transmission Date: 20050211
  Serious: Yes (Other)
  Sender: FDA-Public Use
  Company Number: DE-BRISTOL-MYERS SQUIBB COMPANY-12637443

PATIENT
  Age: 54 Year
  Sex: Male
  Weight: 75 kg

DRUGS (4)
  1. STAVUDINE [Suspect]
     Indication: HIV INFECTION
  2. EFAVIRENZ [Suspect]
     Indication: HIV INFECTION
  3. LAMIVUDINE [Suspect]
     Indication: HIV INFECTION
  4. ABACAVIR [Suspect]
     Indication: HIV INFECTION

REACTIONS (6)
  - BLOOD CREATINE PHOSPHOKINASE INCREASED [None]
  - BLOOD LACTIC ACID INCREASED [None]
  - HEPATIC STEATOSIS [None]
  - MITOCHONDRIAL TOXICITY [None]
  - MYALGIA [None]
  - TRANSAMINASES INCREASED [None]
